FAERS Safety Report 22844266 (Version 4)
Quarter: 2023Q4

REPORT INFORMATION
  Report Type: Report from Study
  Country: US (occurrence: US)
  Receive Date: 20230821
  Receipt Date: 20231210
  Transmission Date: 20240109
  Serious: No
  Sender: FDA-Public Use
  Company Number: US-002147023-NVSC2023US181758

PATIENT
  Age: 63 Year
  Sex: Female

DRUGS (1)
  1. COSENTYX [Suspect]
     Active Substance: SECUKINUMAB
     Indication: Psoriasis
     Dosage: 300 MG, QMO
     Route: 058
     Dates: start: 20180101, end: 20230910

REACTIONS (7)
  - Pruritus [Unknown]
  - Nipple exudate bloody [Unknown]
  - Xerosis [Unknown]
  - Psoriasis [Unknown]
  - Dermatitis psoriasiform [Unknown]
  - Dry skin [Unknown]
  - Therapeutic product effect incomplete [Unknown]

NARRATIVE: CASE EVENT DATE: 20220605
